FAERS Safety Report 6894126-0 (Version None)
Quarter: 2010Q3

REPORT INFORMATION
  Report Type: 
  Country: None (occurrence: None)
  Receive Date: 20100708
  Receipt Date: 20091103
  Transmission Date: 20110219
  Serious: Yes (Other)
  Sender: FDA-Public Use
  Company Number: 2009293716

PATIENT
  Age: 31 Year
  Sex: Female
  Weight: 52.2 kg

DRUGS (3)
  1. CHANTIX [Suspect]
     Indication: SMOKING CESSATION THERAPY
     Dates: start: 20091001
  2. ADDERALL (DEXAMFETAMINE SACCHARATE, DEXAMFETAMINE SULFATE, AMFETAMINE) [Concomitant]
  3. ASPARTATE, AMFETAMINE SULFATE) [Concomitant]

REACTIONS (8)
  - AGGRESSION [None]
  - ANXIETY [None]
  - HALLUCINATION [None]
  - IRRITABILITY [None]
  - MANIA [None]
  - PANIC ATTACK [None]
  - PARANOIA [None]
  - PSYCHOTIC DISORDER [None]
